FAERS Safety Report 24969731 (Version 6)
Quarter: 2025Q3

REPORT INFORMATION
  Report Type: Report from Study
  Country: US (occurrence: US)
  Receive Date: 20250214
  Receipt Date: 20250722
  Transmission Date: 20251021
  Serious: No
  Sender: SUNOVION
  Company Number: US-SUMITOMO PHARMA SWITZERLAND GMBH-2025SPA001248

PATIENT

DRUGS (2)
  1. ORGOVYX [Suspect]
     Active Substance: RELUGOLIX
     Indication: Prostate cancer
     Route: 048
  2. ORGOVYX [Suspect]
     Active Substance: RELUGOLIX
     Dosage: 120 MG, QD
     Route: 048
     Dates: start: 20250104

REACTIONS (17)
  - Pruritus [Unknown]
  - Bowel movement irregularity [Unknown]
  - Dyspnoea [Unknown]
  - Pollakiuria [Unknown]
  - Decreased activity [Unknown]
  - Blood pressure decreased [Unknown]
  - Hypoacusis [Unknown]
  - Haemorrhoidal haemorrhage [Recovering/Resolving]
  - Pollakiuria [Unknown]
  - Swelling [Recovering/Resolving]
  - Somnolence [Unknown]
  - Weight decreased [Unknown]
  - Arthralgia [Unknown]
  - Fatigue [Unknown]
  - Constipation [Unknown]
  - Arthritis [Unknown]
  - Anaemia [Unknown]

NARRATIVE: CASE EVENT DATE: 20250201
